FAERS Safety Report 7989735-1 (Version None)
Quarter: 2011Q4

REPORT INFORMATION
  Report Type: 
  Country: None (occurrence: None)
  Receive Date: 20111219
  Receipt Date: 20111209
  Transmission Date: 20120403
  Serious: Yes (Hospitalization)
  Sender: FDA-Public Use
  Company Number: FR-NOVOPROD-341269

PATIENT

DRUGS (10)
  1. BROMAZEPAM [Concomitant]
     Dosage: 1.5 MG, QD
     Route: 048
  2. GLIMEPIRIDE [Concomitant]
     Dosage: 4 MG, QD
     Route: 048
     Dates: start: 20110501
  3. PANTOPRAZOLE [Concomitant]
     Dosage: 20 MG, QD
     Route: 048
     Dates: start: 20110501
  4. ESCITALOPRAM OXALATE [Concomitant]
     Dosage: 5 MG, QD
     Route: 048
  5. ALLOPURINOL [Concomitant]
     Dosage: 200 MG, QD
     Route: 048
     Dates: start: 20110501
  6. METFORMIN HCL [Concomitant]
     Dosage: 2100 MG, QD
     Route: 048
     Dates: start: 20110501
  7. COVERSYL                           /00790702/ [Concomitant]
     Dosage: 5 MG, QD
     Route: 048
  8. LIRAGLUTIDE FLEXPEN [Suspect]
     Indication: TYPE 2 DIABETES MELLITUS
     Dosage: 1.8 MG, QD
     Route: 058
     Dates: start: 20110505, end: 20111104
  9. CRESTOR [Concomitant]
     Dosage: 10 MG, QD
     Route: 048
     Dates: start: 20110501
  10. TIORFAN [Concomitant]
     Dosage: X2
     Route: 048

REACTIONS (2)
  - DIABETES MELLITUS INADEQUATE CONTROL [None]
  - THROMBOCYTOPENIA [None]
